FAERS Safety Report 5504608-1 (Version None)
Quarter: 2007Q4

REPORT INFORMATION
  Report Type: 
  Country: None (occurrence: None)
  Receive Date: 20071101
  Receipt Date: 20071026
  Transmission Date: 20080405
  Serious: Yes (Hospitalization)
  Sender: FDA-Public Use
  Company Number: JP-BOEHRINGER INGELHEIM PHARMACEUTICALS, INC.-2007-BP-23252NB

PATIENT
  Age: 69 Year
  Sex: Female

DRUGS (2)
  1. PERSANTIN [Suspect]
     Indication: NEPHRITIS
     Route: 048
     Dates: start: 20010101, end: 20061201
  2. PREDNISOLONE [Suspect]
     Indication: NEPHRITIS
     Route: 048
     Dates: start: 20010101, end: 20061201

REACTIONS (1)
  - OESOPHAGEAL HAEMORRHAGE [None]
